FAERS Safety Report 6709324-6 (Version None)
Quarter: 2010Q2

REPORT INFORMATION
  Report Type: 
  Country: None (occurrence: None)
  Receive Date: 20100504
  Receipt Date: 20100422
  Transmission Date: 20101027
  Serious: Yes (Other)
  Sender: FDA-Public Use
  Company Number: US-BAXTER-2010BH011501

PATIENT
  Age: 15 Year
  Sex: Male

DRUGS (3)
  1. ADVATE [Suspect]
     Indication: FACTOR VIII DEFICIENCY
     Route: 042
     Dates: start: 20040702, end: 20050930
  2. FEIBA VH IMMUNO [Suspect]
     Indication: FACTOR VIII DEFICIENCY
     Route: 042
     Dates: start: 20071105, end: 20090119
  3. NOVOSEVEN [Suspect]
     Indication: FACTOR VIII DEFICIENCY
     Route: 042
     Dates: start: 20071105

REACTIONS (1)
  - FACTOR VIII INHIBITION [None]
